FAERS Safety Report 18442080 (Version 1)
Quarter: 2020Q4

REPORT INFORMATION
  Report Type: Spontaneous
  Country: FR (occurrence: FR)
  Receive Date: 20201029
  Receipt Date: 20201029
  Transmission Date: 20210114
  Serious: Yes (Hospitalization, Other)
  Sender: FDA-Public Use
  Company Number: FR-BAUSCH-BL-2020-030212

PATIENT
  Age: 32 Year
  Sex: Female

DRUGS (6)
  1. LAMIVUDINE/ZIDOVUDINE [Suspect]
     Active Substance: LAMIVUDINE\ZIDOVUDINE
     Dosage: RESUMED AGAIN
     Route: 065
  2. LAMIVUDINE/ZIDOVUDINE [Suspect]
     Active Substance: LAMIVUDINE\ZIDOVUDINE
     Indication: PROPHYLAXIS AGAINST HIV INFECTION
     Route: 065
  3. SODIUM NITROPRUSSIDE. [Suspect]
     Active Substance: SODIUM NITROPRUSSIDE
     Indication: VASOSPASM
     Route: 065
  4. DIHYDROERGOTAMINE [Interacting]
     Active Substance: DIHYDROERGOTAMINE
     Indication: ORTHOSTATIC HYPOTENSION
     Route: 065
  5. RITONAVIR/LOPINAVIR [Interacting]
     Active Substance: LOPINAVIR\RITONAVIR
     Indication: PROPHYLAXIS AGAINST HIV INFECTION
     Route: 065
  6. PRAZOSIN. [Suspect]
     Active Substance: PRAZOSIN
     Indication: VASOSPASM
     Route: 065

REACTIONS (3)
  - Ergot poisoning [Recovered/Resolved]
  - Therapy non-responder [Unknown]
  - Drug interaction [Unknown]
